FAERS Safety Report 9814940 (Version 1)
Quarter: 2014Q1

REPORT INFORMATION
  Report Type: Spontaneous
  Country: US (occurrence: US)
  Receive Date: 20140113
  Receipt Date: 20140113
  Transmission Date: 20141002
  Serious: No
  Sender: FDA-Public Use
  Company Number: US-PFIZER INC-2014009660

PATIENT
  Age: 73 Year
  Sex: Female

DRUGS (6)
  1. SUTENT [Suspect]
     Indication: RENAL CELL CARCINOMA
     Dosage: 25 MG, UNK
     Dates: start: 20120209
  2. ASPIRIN [Concomitant]
     Dosage: UNK
  3. ATENOLOL [Concomitant]
     Dosage: UNK
  4. CALCIUM 600 [Concomitant]
     Dosage: UNK
  5. CLARITIN [Concomitant]
     Dosage: UNK
  6. LOPID [Concomitant]
     Dosage: UNK

REACTIONS (2)
  - Disease progression [Unknown]
  - Renal cell carcinoma [Unknown]
